FAERS Safety Report 8093276-3 (Version None)
Quarter: 2012Q1

REPORT INFORMATION
  Report Type: 
  Country: None (occurrence: None)
  Receive Date: 20120128
  Receipt Date: 20110913
  Transmission Date: 20120608
  Serious: No
  Sender: FDA-Public Use
  Company Number: US-ABBOTT-11P-163-0729791-00

PATIENT
  Sex: Female
  Weight: 104.42 kg

DRUGS (5)
  1. DICLOFENAC [Concomitant]
     Indication: RHEUMATOID ARTHRITIS
  2. HUMIRA [Suspect]
  3. FENOFIBRATE [Concomitant]
     Indication: BLOOD CHOLESTEROL INCREASED
  4. ACIDOPHILUS [Concomitant]
     Indication: COLITIS MICROSCOPIC
     Route: 048
     Dates: start: 20110301
  5. HUMIRA [Suspect]
     Indication: RHEUMATOID ARTHRITIS
     Route: 058
     Dates: start: 20110501

REACTIONS (25)
  - DIARRHOEA [None]
  - HYPERHIDROSIS [None]
  - PYREXIA [None]
  - VOMITING [None]
  - MUSCULOSKELETAL STIFFNESS [None]
  - INCREASED UPPER AIRWAY SECRETION [None]
  - CHEST PAIN [None]
  - WEIGHT DECREASED [None]
  - FEELING COLD [None]
  - DYSPNOEA [None]
  - ASTHMA [None]
  - COUGH [None]
  - PAIN [None]
  - CHILLS [None]
  - PNEUMONIA [None]
  - BRONCHITIS [None]
  - GASTROOESOPHAGEAL REFLUX DISEASE [None]
  - BLOOD TRIGLYCERIDES INCREASED [None]
  - ADVERSE REACTION [None]
  - INJECTION SITE PAIN [None]
  - ABDOMINAL PAIN [None]
  - COLITIS [None]
  - FATIGUE [None]
  - VIRAL INFECTION [None]
  - DIZZINESS [None]
